FAERS Safety Report 5451852-8 (Version None)
Quarter: 2007Q3

REPORT INFORMATION
  Report Type: 
  Country: None (occurrence: None)
  Receive Date: 20070912
  Receipt Date: 20070828
  Transmission Date: 20080115
  Serious: Yes (Death, Hospitalization)
  Sender: FDA-Public Use
  Company Number: SPV1-2007-04053

PATIENT
  Age: 71 Year
  Sex: Male

DRUGS (4)
  1. PENTASA [Suspect]
     Indication: COLITIS ULCERATIVE
     Dosage: 3 G, DAILY, ORAL
     Route: 048
     Dates: start: 20070206
  2. HYDROCHLOROTHIAZIDE [Concomitant]
  3. ENALAPRIL MALEATE [Concomitant]
  4. SERETIDE(FLUTICASONE PROPIONATE, SALMETEROL XINAFOATE) [Concomitant]

REACTIONS (6)
  - CRYPTOGENIC ORGANISING PNEUMONIA [None]
  - DIFFUSE ALVEOLAR DAMAGE [None]
  - FIBROSIS [None]
  - PNEUMOTHORAX [None]
  - POLYNEUROPATHY [None]
  - VOMITING [None]
